FAERS Safety Report 6008899-2 (Version None)
Quarter: 2008Q4

REPORT INFORMATION
  Report Type: 
  Country: None (occurrence: None)
  Receive Date: 20081217
  Receipt Date: 20081212
  Transmission Date: 20090506
  Serious: Yes (Other)
  Sender: FDA-Public Use
  Company Number: DO-ABBOTT-08P-CLI-0490053-00

PATIENT
  Age: 36 Year
  Sex: Female
  Weight: 45.854 kg

DRUGS (2)
  1. LUPRON DEPOT [Suspect]
     Indication: ENDOMETRIOSIS
     Route: 030
     Dates: start: 20081031, end: 20081031
  2. PROPRANOLOL [Concomitant]
     Indication: MITRAL VALVE PROLAPSE
     Route: 048

REACTIONS (1)
  - VAGINAL HAEMORRHAGE [None]
